FAERS Safety Report 25289283 (Version 1)
Quarter: 2025Q2

REPORT INFORMATION
  Report Type: Spontaneous
  Country: US (occurrence: None)
  Receive Date: 20250509
  Receipt Date: 20250509
  Transmission Date: 20250717
  Serious: Yes (Hospitalization)
  Sender: FDA-CTU
  Company Number: None

PATIENT
  Age: 64 Year
  Sex: Male

DRUGS (11)
  1. FASENRA [Suspect]
     Active Substance: BENRALIZUMAB
     Indication: Asthma
     Route: 058
     Dates: start: 20250220
  2. GLIMEPIRIDE [Concomitant]
     Active Substance: GLIMEPIRIDE
  3. JARDIANCE [Concomitant]
     Active Substance: EMPAGLIFLOZIN
  4. ALBUTEROL SULFATE [Concomitant]
     Active Substance: ALBUTEROL SULFATE
  5. ALPRAZOLAM [Concomitant]
     Active Substance: ALPRAZOLAM
  6. AZITHROMYCIN [Concomitant]
     Active Substance: AZITHROMYCIN
  7. lpratrop/albuterol neb [Concomitant]
  8. ATORVASTATIN [Concomitant]
     Active Substance: ATORVASTATIN
  9. TAMSULOSIN [Concomitant]
     Active Substance: TAMSULOSIN
  10. POTASSIUM CHLORIDE [Concomitant]
     Active Substance: POTASSIUM CHLORIDE
  11. FUROSEMIDE [Concomitant]
     Active Substance: FUROSEMIDE

REACTIONS (2)
  - Chronic obstructive pulmonary disease [None]
  - Respiratory syncytial virus infection [None]

NARRATIVE: CASE EVENT DATE: 20250401
